FAERS Safety Report 4696886-6 (Version None)
Quarter: 2005Q2

REPORT INFORMATION
  Report Type: 
  Country: None (occurrence: None)
  Receive Date: 20050620
  Receipt Date: 20050613
  Transmission Date: 20051028
  Serious: Yes (Death, Other)
  Sender: FDA-Public Use
  Company Number: 2005-06-0316

PATIENT
  Age: 60 Year
  Sex: Female

DRUGS (2)
  1. TEMODAL [Suspect]
     Indication: METASTASES TO CENTRAL NERVOUS SYSTEM
     Dosage: 90 MG QD
     Dates: start: 20050310, end: 20050329
  2. RADIATION THERAPY [Concomitant]

REACTIONS (4)
  - FEMALE GENITAL-DIGESTIVE TRACT FISTULA [None]
  - GASTROINTESTINAL HAEMORRHAGE [None]
  - HAEMOGLOBIN DECREASED [None]
  - THROMBOCYTOPENIA [None]
